FAERS Safety Report 18630384 (Version 3)
Quarter: 2021Q2

REPORT INFORMATION
  Report Type: Other
  Country: CA (occurrence: CA)
  Receive Date: 20201218
  Receipt Date: 20210512
  Transmission Date: 20210717
  Serious: Yes (Hospitalization)
  Sender: FDA-Public Use
  Company Number: CA-TOLMAR, INC.-20CA024351

PATIENT
  Age: 74 Year
  Sex: Male

DRUGS (4)
  1. ELIGARD [Suspect]
     Active Substance: LEUPROLIDE ACETATE
     Dosage: 30 MG, Q 4 MONTH
     Route: 058
     Dates: start: 20210325
  2. ENZALUTAMIDE [Concomitant]
     Active Substance: ENZALUTAMIDE
     Indication: PRODUCT USED FOR UNKNOWN INDICATION
     Dosage: UNK
     Route: 065
  3. ELIGARD [Suspect]
     Active Substance: LEUPROLIDE ACETATE
     Dosage: 30 MG, Q 4 MONTH
     Route: 058
     Dates: start: 20201203
  4. ELIGARD [Suspect]
     Active Substance: LEUPROLIDE ACETATE
     Indication: PROSTATE CANCER
     Dosage: 30 MG, Q 4 MONTH
     Route: 058
     Dates: start: 20200422

REACTIONS (8)
  - Haematuria [Not Recovered/Not Resolved]
  - Weight decreased [Unknown]
  - Hot flush [Unknown]
  - Decreased appetite [Unknown]
  - Nocturia [Unknown]
  - Injection site pain [Unknown]
  - Injection site mass [Unknown]
  - Pollakiuria [Unknown]

NARRATIVE: CASE EVENT DATE: 20200422
